FAERS Safety Report 8077576-9 (Version None)
Quarter: 2012Q1

REPORT INFORMATION
  Report Type: 
  Country: None (occurrence: None)
  Receive Date: 20120127
  Receipt Date: 20120119
  Transmission Date: 20120608
  Serious: Yes (Other)
  Sender: FDA-Public Use
  Company Number: CHPA2012US001171

PATIENT
  Age: 64 Year
  Sex: Male

DRUGS (4)
  1. NICOTINE [Suspect]
     Dosage: 7 MG, QD
     Route: 062
     Dates: start: 20110101, end: 20110101
  2. NICOTINE [Suspect]
     Indication: SMOKING CESSATION THERAPY
     Dosage: 21 MG, QD
     Route: 062
     Dates: start: 20111101, end: 20110101
  3. NICOTINE [Suspect]
     Dosage: 14 MG, QD
     Route: 062
     Dates: start: 20110101, end: 20110101
  4. NICOTINE [Suspect]
     Dosage: 14 MG, QD
     Route: 062
     Dates: start: 20120101

REACTIONS (6)
  - OEDEMA PERIPHERAL [None]
  - URINE OUTPUT DECREASED [None]
  - UNDERDOSE [None]
  - ABDOMINAL DISTENSION [None]
  - DRUG INEFFECTIVE [None]
  - SKIN DISCOLOURATION [None]
